FAERS Safety Report 9664111 (Version 1)
Quarter: 2013Q4

REPORT INFORMATION
  Report Type: Spontaneous
  Country: US (occurrence: US)
  Receive Date: 20131101
  Receipt Date: 20131101
  Transmission Date: 20140711
  Serious: No
  Sender: FDA-Public Use
  Company Number: US-JNJFOC-20131014871

PATIENT
  Age: 17 Year
  Sex: Male
  Weight: 47.63 kg

DRUGS (1)
  1. INVEGA SUSTENNA [Suspect]
     Indication: MOOD SWINGS
     Route: 030
     Dates: start: 201309

REACTIONS (1)
  - Hypersomnia [Not Recovered/Not Resolved]
